FAERS Safety Report 24790034 (Version 1)
Quarter: 2024Q4

REPORT INFORMATION
  Report Type: Spontaneous
  Country: US (occurrence: US)
  Receive Date: 20241230
  Receipt Date: 20241230
  Transmission Date: 20250114
  Serious: No
  Sender: EISAI
  Company Number: US-Eisai-EC-2024-179951

PATIENT
  Sex: Female

DRUGS (1)
  1. LEQEMBI [Suspect]
     Active Substance: LECANEMAB-IRMB
     Indication: Product used for unknown indication
     Dosage: DOSE UNKNOWN
     Route: 042
     Dates: end: 2024

REACTIONS (2)
  - Cerebral microhaemorrhage [Unknown]
  - Head discomfort [Unknown]

NARRATIVE: CASE EVENT DATE: 20240101
